FAERS Safety Report 6102740-5 (Version None)
Quarter: 2009Q1

REPORT INFORMATION
  Report Type: 
  Country: None (occurrence: None)
  Receive Date: 20090304
  Receipt Date: 20090220
  Transmission Date: 20090719
  Serious: Yes (Death)
  Sender: FDA-Public Use
  Company Number: NL-B.I. PHARMACEUTICALS,INC./RIDGEFIELD-2009-DE-01739GD

PATIENT

DRUGS (2)
  1. NEVIRAPINE [Suspect]
     Indication: HIV INFECTION
  2. ANTIRETROVIRAL DRUGS [Suspect]
     Indication: HIV INFECTION

REACTIONS (5)
  - DEATH [None]
  - DRUG TOXICITY [None]
  - HEPATOTOXICITY [None]
  - HYPERSENSITIVITY [None]
  - RASH [None]
